FAERS Safety Report 10111338 (Version 2)
Quarter: 2014Q2

REPORT INFORMATION
  Report Type: Spontaneous
  Country: FI (occurrence: FI)
  Receive Date: 20140425
  Receipt Date: 20140506
  Transmission Date: 20141212
  Serious: Yes (Hospitalization)
  Sender: FDA-Public Use
  Company Number: FI-JNJFOC-20140417970

PATIENT
  Sex: Male

DRUGS (1)
  1. REMICADE [Suspect]
     Indication: COLITIS ULCERATIVE
     Route: 042
     Dates: start: 2013

REACTIONS (3)
  - Vomiting [Not Recovered/Not Resolved]
  - Muscle spasms [Not Recovered/Not Resolved]
  - Abdominal pain [Not Recovered/Not Resolved]
